FAERS Safety Report 17863665 (Version 1)
Quarter: 2020Q2

REPORT INFORMATION
  Report Type: Report from Study
  Country: US (occurrence: US)
  Receive Date: 20200605
  Receipt Date: 20200605
  Transmission Date: 20200714
  Serious: No
  Sender: FDA-Public Use
  Company Number: NVSC2020US156523

PATIENT
  Sex: Female

DRUGS (1)
  1. COSENTYX [Suspect]
     Active Substance: SECUKINUMAB
     Indication: PRODUCT USED FOR UNKNOWN INDICATION
     Dosage: 150 MG 1/WEEK
     Route: 065

REACTIONS (5)
  - Accidental exposure to product [Unknown]
  - Injection site haemorrhage [Unknown]
  - Device malfunction [Unknown]
  - Injection site pain [Unknown]
  - Incorrect dose administered [Unknown]
